FAERS Safety Report 13155310 (Version 2)
Quarter: 2017Q1

REPORT INFORMATION
  Report Type: Spontaneous
  Country: PL (occurrence: PL)
  Receive Date: 20170126
  Receipt Date: 20170227
  Transmission Date: 20170428
  Serious: Yes (Death, Hospitalization)
  Sender: FDA-Public Use
  Company Number: PL-TEVA-732329ISR

PATIENT
  Age: 15 Year
  Sex: Female

DRUGS (1)
  1. VINCRISTINE [Suspect]
     Active Substance: VINCRISTINE
     Indication: DISEASE PROGRESSION
     Dosage: 4 MG/M2 DAILY; TWO DOSES 1 WEEK APART

REACTIONS (2)
  - Drug ineffective [Unknown]
  - Cardiopulmonary failure [Fatal]
